FAERS Safety Report 4468167-7 (Version None)
Quarter: 2004Q4

REPORT INFORMATION
  Report Type: 
  Country: None (occurrence: None)
  Receive Date: 20041007
  Receipt Date: 20040927
  Transmission Date: 20050328
  Serious: Yes (Hospitalization)
  Sender: FDA-Public Use
  Company Number: FR-BRISTOL-MYERS SQUIBB COMPANY-12720264

PATIENT
  Age: 42 Year
  Sex: Female

DRUGS (10)
  1. CARBOPLATIN [Suspect]
     Indication: OVARIAN CANCER
     Dosage: START DATE: 03-APR-03
     Route: 042
     Dates: start: 20030709, end: 20030709
  2. PACLITAXEL [Suspect]
     Indication: OVARIAN CANCER
     Dosage: START DATE: 03-APR-03
     Route: 042
     Dates: start: 20030709, end: 20030709
  3. IMOVANE [Concomitant]
     Dates: start: 20030422
  4. FUMAFER [Concomitant]
     Dates: start: 20030624
  5. MAG 2 [Concomitant]
     Dates: start: 20030619
  6. XANAX [Concomitant]
     Dates: start: 20030403
  7. SPASFON [Concomitant]
     Dates: start: 20030718
  8. MOPRAL [Concomitant]
     Dates: start: 20030718
  9. KYTRIL [Concomitant]
     Dates: start: 20030718
  10. NEUPOGEN [Concomitant]

REACTIONS (2)
  - HYPOKALAEMIA [None]
  - VOMITING [None]
